FAERS Safety Report 5402085-2 (Version None)
Quarter: 2007Q3

REPORT INFORMATION
  Report Type: 
  Country: None (occurrence: None)
  Receive Date: 20070727
  Receipt Date: 20070720
  Transmission Date: 20080115
  Serious: Yes (Hospitalization)
  Sender: FDA-Public Use
  Company Number: S07-USA-03137-01

PATIENT
  Age: 81 Year
  Sex: Female

DRUGS (8)
  1. NAMENDA [Suspect]
     Indication: DEMENTIA
     Dosage: 5 MG PO
     Route: 048
     Dates: start: 20070715
  2. PAXIL [Concomitant]
  3. THEO-DUR [Concomitant]
  4. ACCUPRIL [Concomitant]
  5. DILTIAZEM [Concomitant]
  6. VITAMIN D [Concomitant]
  7. SENNA [Concomitant]
  8. VITAMIN E [Concomitant]

REACTIONS (4)
  - ABASIA [None]
  - HEADACHE [None]
  - MUSCULAR WEAKNESS [None]
  - VOMITING [None]
